FAERS Safety Report 10052852 (Version 1)
Quarter: 2014Q2

REPORT INFORMATION
  Report Type: Report from Study
  Country: ES (occurrence: ES)
  Receive Date: 20140402
  Receipt Date: 20140402
  Transmission Date: 20141212
  Serious: Yes (Life-Threatening, Hospitalization)
  Sender: FDA-Public Use
  Company Number: ES-BAYER-2014-046926

PATIENT
  Age: 89 Year
  Sex: Male

DRUGS (6)
  1. XARELTO 10 MG COMPRIMIDOS RECUBIERTOS CON PELICULA, 10 COMPRIMIDOS [Suspect]
     Indication: ATRIAL FIBRILLATION
     Dosage: 10 MG, QD
     Route: 048
     Dates: start: 201304, end: 20140102
  2. XARELTO 10 MG COMPRIMIDOS RECUBIERTOS CON PELICULA, 10 COMPRIMIDOS [Interacting]
     Indication: CEREBROVASCULAR ACCIDENT PROPHYLAXIS
  3. ACETYLSALICYLIC ACID({=100 MG) [Interacting]
     Indication: ISCHAEMIC CARDIOMYOPATHY
     Dosage: 100 MG, QD
     Route: 048
     Dates: end: 20140102
  4. FUROSEMIDA /00032601/ [Suspect]
     Indication: RENAL FAILURE CHRONIC
     Dosage: 40 MG, QD
     Route: 048
     Dates: end: 20140102
  5. ENALAPRIL [Suspect]
     Indication: HYPERTENSION
     Dosage: 10 MG, QD
     Route: 048
     Dates: start: 201309
  6. NITROGLICERINA [Concomitant]
     Indication: ISCHAEMIC CARDIOMYOPATHY
     Dosage: 15 MG, QD
     Route: 062
     Dates: end: 20140102

REACTIONS (2)
  - Upper gastrointestinal haemorrhage [Recovered/Resolved]
  - Renal failure acute [Recovering/Resolving]
